FAERS Safety Report 5259444-0 (Version None)
Quarter: 2007Q1

REPORT INFORMATION
  Report Type: 
  Country: None (occurrence: None)
  Receive Date: 20070305
  Receipt Date: 20070222
  Transmission Date: 20070707
  Serious: Yes (Hospitalization)
  Sender: FDA-Public Use
  Company Number: 231406K07USA

PATIENT
  Age: 52 Year
  Sex: Male
  Weight: 90.7194 kg

DRUGS (10)
  1. REBIF [Suspect]
     Indication: MULTIPLE SCLEROSIS
     Dosage: 8.8 MCG, 3 IN 1 WEEKS, SUBCUTANEOUS
     Route: 058
     Dates: start: 20070202, end: 20070201
  2. BACLOFEN [Concomitant]
  3. LISINOPRIL (LISINOPRIL /00894001/) [Concomitant]
  4. DIAZEPAM [Concomitant]
  5. AMITRIPTYLINE HCL [Concomitant]
  6. LOVASTATIN [Concomitant]
  7. FUROSEMIDE (FUROSEMIDE /00032601/) [Concomitant]
  8. NEXIUM [Concomitant]
  9. OXYCODONE HCL [Concomitant]
  10. MORPHINE SULFATE [Concomitant]

REACTIONS (1)
  - PNEUMONIA [None]
